FAERS Safety Report 7910406-1 (Version None)
Quarter: 2011Q4

REPORT INFORMATION
  Report Type: 
  Country: None (occurrence: None)
  Receive Date: 20111111
  Receipt Date: 20110728
  Transmission Date: 20120403
  Serious: No
  Sender: FDA-Public Use
  Company Number: US-BAYER-2011-069283

PATIENT
  Sex: Female

DRUGS (2)
  1. ALEVE (CAPLET) [Suspect]
     Dosage: 1 DF, UNK
     Route: 048
  2. TYLENOL REGULAR [Concomitant]

REACTIONS (1)
  - DRUG INEFFECTIVE [None]
